FAERS Safety Report 7092412-5 (Version None)
Quarter: 2010Q4

REPORT INFORMATION
  Report Type: 
  Country: None (occurrence: None)
  Receive Date: 20101110
  Receipt Date: 20101104
  Transmission Date: 20110411
  Serious: No
  Sender: FDA-Public Use
  Company Number: US-BIOGENIDEC-2010BI038517

PATIENT
  Sex: Female
  Weight: 73 kg

DRUGS (5)
  1. AVONEX [Suspect]
     Indication: MULTIPLE SCLEROSIS
     Route: 030
     Dates: start: 20100728
  2. AVONEX [Suspect]
     Route: 030
     Dates: start: 20100811
  3. AVONEX [Suspect]
     Route: 030
     Dates: start: 20100825
  4. AVONEX [Suspect]
     Route: 030
     Dates: start: 20101020
  5. LEVOTHROID [Concomitant]
     Indication: THYROID DISORDER
     Dates: start: 19850101

REACTIONS (6)
  - DYSMENORRHOEA [None]
  - MENORRHAGIA [None]
  - MENSTRUATION IRREGULAR [None]
  - MUSCLE SPASMS [None]
  - NAUSEA [None]
  - TOBACCO USER [None]
